FAERS Safety Report 5005584-0 (Version None)
Quarter: 2006Q2

REPORT INFORMATION
  Report Type: 
  Country: None (occurrence: None)
  Receive Date: 20060515
  Receipt Date: 20050412
  Transmission Date: 20061013
  Serious: No
  Sender: FDA-Public Use
  Company Number: 30899

PATIENT
  Age: 7 Year
  Sex: Male
  Weight: 23.1334 kg

DRUGS (1)
  1. TRIMETHOPRIM SULFATE/POLYMYXIN B SULFATE SOLUTION [Suspect]
     Indication: CONJUNCTIVITIS
     Dosage: 1 GTT QID OPHT
     Route: 047
     Dates: start: 20050219, end: 20050222

REACTIONS (5)
  - EYE PAIN [None]
  - EYE PRURITUS [None]
  - EYE SWELLING [None]
  - HYPERSENSITIVITY [None]
  - OCULAR HYPERAEMIA [None]
